FAERS Safety Report 18604752 (Version 1)
Quarter: 2020Q4

REPORT INFORMATION
  Report Type: Spontaneous
  Country: US (occurrence: US)
  Receive Date: 20201211
  Receipt Date: 20201211
  Transmission Date: 20210114
  Serious: No
  Sender: FDA-Public Use
  Company Number: None

PATIENT
  Age: 68 Year
  Sex: Female
  Weight: 96 kg

DRUGS (1)
  1. RENFLEXIS [Suspect]
     Active Substance: INFLIXIMAB-ABDA
     Indication: PSORIATIC ARTHROPATHY
     Dosage: ?          OTHER FREQUENCY:EVERY 2 WEEKS X2;?
     Route: 041
     Dates: start: 20201016

REACTIONS (4)
  - Infusion related reaction [None]
  - Dizziness [None]
  - Presyncope [None]
  - Nausea [None]

NARRATIVE: CASE EVENT DATE: 20201016
